FAERS Safety Report 6358131-5 (Version None)
Quarter: 2009Q3

REPORT INFORMATION
  Report Type: 
  Country: None (occurrence: None)
  Receive Date: 20090911
  Receipt Date: 20090910
  Transmission Date: 20100115
  Serious: Yes (Hospitalization, Other)
  Sender: FDA-Public Use
  Company Number: AUR-APU-2009-00565

PATIENT
  Age: 33 Day
  Sex: Female

DRUGS (6)
  1. ZIDOVUDINE [Suspect]
     Indication: PROPHYLAXIS AGAINST HIV INFECTION
     Dosage: 4MG/KG - Q12HOURS
  2. NEVIRAPINE [Suspect]
     Indication: PROPHYLAXIS AGAINST HIV INFECTION
     Dosage: 2MG/KG - X1
  3. TRUVADA [Suspect]
     Indication: PROPHYLAXIS AGAINST HIV INFECTION
     Dosage: X1, 1 DOSE AFTER BIRTH
  4. NEVIRAPINE [Suspect]
     Indication: PROPHYLAXIS AGAINST HIV INFECTION
     Dosage: 200MG - X1 - TRANPLACENTALLY, AT ONCET OF LABOR
     Route: 064
  5. ZIDOVUDINE [Suspect]
     Indication: PROPHYLAXIS AGAINST HIV INFECTION
     Dosage: 300MG - BID - TRANSPLACENTALLY
     Route: 064
  6. TENOFOVIR DISOPROXIL FUMARATE [Suspect]
     Indication: PROPHYLAXIS AGAINST HIV INFECTION
     Dosage: 2 TABLETS - X1 - TRANSPLACENTALLY
     Route: 064

REACTIONS (5)
  - CAESAREAN SECTION [None]
  - CONGENITAL HIV INFECTION [None]
  - MATERNAL DRUGS AFFECTING FOETUS [None]
  - SEPSIS NEONATAL [None]
  - URINARY TRACT INFECTION [None]
